FAERS Safety Report 7449895-8 (Version None)
Quarter: 2011Q2

REPORT INFORMATION
  Report Type: 
  Country: None (occurrence: None)
  Receive Date: 20110502
  Receipt Date: 20100512
  Transmission Date: 20111010
  Serious: No
  Sender: FDA-Public Use
  Company Number: US-BAYER-201023097NA

PATIENT
  Age: 31 Year
  Sex: Female

DRUGS (4)
  1. YAZ [Suspect]
     Indication: MOOD SWINGS
  2. YAZ [Suspect]
     Indication: ABDOMINAL DISTENSION
  3. YAZ [Suspect]
     Indication: MENORRHAGIA
  4. BENADRYL [Concomitant]
     Dosage: UNK

REACTIONS (1)
  - URTICARIA [None]
